FAERS Safety Report 8766701 (Version 2)
Quarter: 2019Q3

REPORT INFORMATION
  Report Type: Spontaneous
  Country: FR (occurrence: FR)
  Receive Date: 20120904
  Receipt Date: 20190704
  Transmission Date: 20191005
  Serious: Yes (Death, Hospitalization, Other)
  Sender: FDA-Public Use
  Company Number: FR-SANOFI-AVENTIS-2012SA063124

PATIENT
  Age: 78 Year
  Sex: Male
  Weight: 58 kg

DRUGS (17)
  1. TAVANIC [Suspect]
     Active Substance: LEVOFLOXACIN
     Indication: ARTHRITIS BACTERIAL
     Dosage: 250 MG,BID
     Route: 042
     Dates: start: 20120607, end: 20120608
  2. CLINDAMYCIN HYDROCHLORIDE. [Suspect]
     Active Substance: CLINDAMYCIN HYDROCHLORIDE
     Indication: ARTHRITIS BACTERIAL
     Dosage: 600 MG,TID
     Route: 048
     Dates: start: 20120625
  3. PIPERACILLIN. [Suspect]
     Active Substance: PIPERACILLIN SODIUM
     Indication: ARTHRITIS BACTERIAL
     Dosage: 8 G,QD
     Route: 042
     Dates: start: 20120629
  4. CEFOTAXIME SODIUM [Suspect]
     Active Substance: CEFOTAXIME SODIUM
     Indication: ARTHRITIS BACTERIAL
     Dosage: 2 G,TID
     Route: 042
     Dates: start: 20120601, end: 20120607
  5. PERINDOPRIL [Concomitant]
     Active Substance: PERINDOPRIL
     Dosage: UNK
  6. LASIX [Concomitant]
     Active Substance: FUROSEMIDE
     Dosage: UNK
  7. PARIET [Concomitant]
     Active Substance: RABEPRAZOLE SODIUM
     Dosage: UNK
  8. FERROUS SULFATE. [Concomitant]
     Active Substance: FERROUS SULFATE
     Dosage: UNK
  9. GENTAMICIN SULFATE. [Suspect]
     Active Substance: GENTAMICIN SULFATE
     Indication: ARTHRITIS BACTERIAL
     Dosage: 300 MG,QD
     Route: 042
     Dates: start: 20120601, end: 20120604
  10. PENTOXIFYLLINE. [Concomitant]
     Active Substance: PENTOXIFYLLINE
     Dosage: UNK
  11. TAVANIC [Suspect]
     Active Substance: LEVOFLOXACIN
     Indication: ARTHRITIS BACTERIAL
     Dosage: 250 MG,BID
     Route: 048
     Dates: start: 20120610, end: 20120629
  12. CEFOTAXIME SODIUM [Suspect]
     Active Substance: CEFOTAXIME SODIUM
     Dosage: 2 G, QD
     Route: 042
     Dates: start: 20120625, end: 20120627
  13. KALEORID [Concomitant]
     Active Substance: POTASSIUM CHLORIDE
     Dosage: UNK
  14. PREVISCAN [FLUINDIONE] [Concomitant]
     Active Substance: FLUINDIONE
  15. NEBIVOLOL. [Concomitant]
     Active Substance: NEBIVOLOL
     Dosage: UNK
  16. PRAXILENE [Concomitant]
     Active Substance: NAFRONYL
     Dosage: UNK
  17. RIFADINE [Suspect]
     Active Substance: RIFAMPIN
     Indication: ARTHRITIS BACTERIAL
     Dosage: 600 MG,BID
     Route: 042
     Dates: start: 20120604, end: 20120610

REACTIONS (4)
  - Oliguria [Fatal]
  - Acute kidney injury [Fatal]
  - Hyperkalaemia [Fatal]
  - Tubulointerstitial nephritis [Fatal]

NARRATIVE: CASE EVENT DATE: 20120608
